FAERS Safety Report 7423185-1 (Version None)
Quarter: 2011Q2

REPORT INFORMATION
  Report Type: 
  Country: None (occurrence: None)
  Receive Date: 20110419
  Receipt Date: 20110412
  Transmission Date: 20111010
  Serious: Yes (Other)
  Sender: FDA-Public Use
  Company Number: US-AMGEN-USASP2011019295

PATIENT
  Age: 63 Year
  Sex: Female

DRUGS (3)
  1. NEULASTA [Suspect]
     Indication: CHEMOTHERAPY
     Dosage: 6 MG, UNK
     Dates: end: 20110406
  2. TAXOL [Concomitant]
     Dosage: UNK
     Dates: end: 20110405
  3. CARBOPLATIN [Concomitant]
     Dosage: UNK
     Dates: end: 20110405

REACTIONS (2)
  - WHITE BLOOD CELL COUNT ABNORMAL [None]
  - NEUTROPHIL COUNT ABNORMAL [None]
